FAERS Safety Report 25351849 (Version 8)
Quarter: 2025Q4

REPORT INFORMATION
  Report Type: Report from Study
  Country: EU (occurrence: EU)
  Receive Date: 20250523
  Receipt Date: 20251219
  Transmission Date: 20260118
  Serious: Yes (Death, Hospitalization, Other)
  Sender: ROCHE
  Company Number: EU-ROCHE-10000282291

PATIENT
  Age: 78 Year
  Sex: Male

DRUGS (85)
  1. POLIVY [Suspect]
     Active Substance: POLATUZUMAB VEDOTIN-PIIQ
     Indication: Diffuse large B-cell lymphoma
     Dosage: ON 27-JAN-2025, HE RECEIVED HIS MOST RECENT DOSE OF POLATUZUMAB VEDOTOIN PRIOR TO EVENT.
     Route: 042
     Dates: start: 20241126
  2. POLIVY [Suspect]
     Active Substance: POLATUZUMAB VEDOTIN-PIIQ
     Dosage: DOSE: 1.80 MG/KG
     Route: 042
     Dates: start: 20250127
  3. POLIVY [Suspect]
     Active Substance: POLATUZUMAB VEDOTIN-PIIQ
     Route: 042
     Dates: start: 20250310
  4. RITUXIMAB [Suspect]
     Active Substance: RITUXIMAB
     Indication: Diffuse large B-cell lymphoma
     Dosage: ON 10-MAR-2025  ADMINISTERED   PRIOR TO AE.?ON 27-JAN-2025, HE RECEIVED HIS MOST RECENT DOSE OF RITUXIMAB PRIOR TO EVENT??LAST DOSE OF RITUXIMAB ADMINISTERED PRIOR TO ADVERSE EVENT IS 375 MG/M2.??PATIENT RECEIVED BIOSIMILAR CONCERNING  LAST DOSE OF RITUXIMAB PRIOR TO AE ONSET.
     Route: 042
     Dates: start: 20241126
  5. RITUXIMAB [Suspect]
     Active Substance: RITUXIMAB
     Route: 042
     Dates: start: 20250127
  6. RITUXIMAB [Suspect]
     Active Substance: RITUXIMAB
     Route: 042
     Dates: start: 20250310
  7. CYCLOPHOSPHAMIDE [Suspect]
     Active Substance: CYCLOPHOSPHAMIDE
     Indication: Diffuse large B-cell lymphoma
     Dosage: DATE OF MOST RECENT OF DRUG PRIOR TO AE IS 10/MAR/2025.?LAST DOSE OF ADMINISTERED PRIOR TO AE IS 750 MG/M2.
     Route: 042
     Dates: start: 20241126
  8. CYCLOPHOSPHAMIDE [Suspect]
     Active Substance: CYCLOPHOSPHAMIDE
     Dosage: DATE OF MOST RECENT OF DRUG PRIOR TO AE IS 10/MAR/2025.?LAST DOSE OF ADMINISTERED PRIOR TO AE IS 750 MG/M2.
     Route: 042
     Dates: start: 20250127
  9. CYCLOPHOSPHAMIDE [Suspect]
     Active Substance: CYCLOPHOSPHAMIDE
     Dosage: DATE OF MOST RECENT OF DRUG PRIOR TO AE IS 10/MAR/2025.?LAST DOSE OF ADMINISTERED PRIOR TO AE IS 750 MG/M2.
     Route: 042
     Dates: start: 20250310
  10. CYCLOPHOSPHAMIDE [Suspect]
     Active Substance: CYCLOPHOSPHAMIDE
     Route: 042
  11. DOXORUBICIN [Suspect]
     Active Substance: DOXORUBICIN
     Indication: Diffuse large B-cell lymphoma
     Dosage: MOST RECENT DOSE OF DOXORUBICIN ADMINISTERED PRIOR TO AE:10-MAR-2025.??ON 27-JAN-2025, HE RECEIVED HIS MOST RECENT DOSE OF DOXORUBICIN PRIOR TO EVENT
     Route: 042
     Dates: start: 20241126
  12. DOXORUBICIN [Suspect]
     Active Substance: DOXORUBICIN
     Dosage: MOST RECENT DOSE OF DOXORUBICIN ADMINISTERED PRIOR TO AE:10-MAR-2025.??ON 27-JAN-2025, HE RECEIVED HIS MOST RECENT DOSE OF DOXORUBICIN PRIOR TO EVENT
     Route: 042
     Dates: start: 20250127
  13. DOXORUBICIN [Suspect]
     Active Substance: DOXORUBICIN
     Dosage: MOST RECENT DOSE OF DOXORUBICIN ADMINISTERED PRIOR TO AE:10-MAR-2025.
     Route: 042
     Dates: start: 20250310
  14. PREDNISONE [Suspect]
     Active Substance: PREDNISONE
     Indication: Diffuse large B-cell lymphoma
     Dosage: LAST DOSE OF PREDNISONE PRIOR TO EVENT IS 80 MG
     Route: 048
     Dates: start: 20241126
  15. PREDNISONE [Suspect]
     Active Substance: PREDNISONE
     Dosage: LAST DOSE OF PREDNISONE PRIOR TO EVENT IS 80 MG
     Route: 048
     Dates: start: 20250127
  16. PREDNISONE [Suspect]
     Active Substance: PREDNISONE
     Dosage: LAST DOSE OF PREDNISONE PRIOR TO EVENT IS 80 MG
     Route: 048
     Dates: start: 20250310
  17. PREDNISONE [Suspect]
     Active Substance: PREDNISONE
     Route: 048
  18. LEVOTHYROXINE SODIUM [Concomitant]
     Active Substance: LEVOTHYROXINE SODIUM
     Route: 048
  19. LEVOTHYROXINE SODIUM [Concomitant]
     Active Substance: LEVOTHYROXINE SODIUM
  20. LEVOTHYROXINE SODIUM [Concomitant]
     Active Substance: LEVOTHYROXINE SODIUM
  21. LEVOTHYROXINE SODIUM [Concomitant]
     Active Substance: LEVOTHYROXINE SODIUM
  22. LEVOTHYROXINE SODIUM [Concomitant]
     Active Substance: LEVOTHYROXINE SODIUM
  23. LEVOTHYROXINE SODIUM [Concomitant]
     Active Substance: LEVOTHYROXINE SODIUM
  24. LEVOTHYROXINE SODIUM [Concomitant]
     Active Substance: LEVOTHYROXINE SODIUM
  25. LEVOTHYROXINE SODIUM [Concomitant]
     Active Substance: LEVOTHYROXINE SODIUM
  26. LEVOTHYROXINE SODIUM [Concomitant]
     Active Substance: LEVOTHYROXINE SODIUM
  27. LEVOTHYROXINE SODIUM [Concomitant]
     Active Substance: LEVOTHYROXINE SODIUM
  28. LEVOTHYROXINE SODIUM [Concomitant]
     Active Substance: LEVOTHYROXINE SODIUM
  29. LEVOTHYROXINE SODIUM [Concomitant]
     Active Substance: LEVOTHYROXINE SODIUM
  30. LEVOTHYROXINE SODIUM [Concomitant]
     Active Substance: LEVOTHYROXINE SODIUM
  31. LEVOTHYROXINE SODIUM [Concomitant]
     Active Substance: LEVOTHYROXINE SODIUM
  32. LEVOTHYROXINE SODIUM [Concomitant]
     Active Substance: LEVOTHYROXINE SODIUM
  33. LEVOTHYROXINE SODIUM [Concomitant]
     Active Substance: LEVOTHYROXINE SODIUM
  34. AMLODIPINE\INDAPAMIDE\PERINDOPRIL [Concomitant]
     Active Substance: AMLODIPINE\INDAPAMIDE\PERINDOPRIL
  35. AMLODIPINE\INDAPAMIDE\PERINDOPRIL [Concomitant]
     Active Substance: AMLODIPINE\INDAPAMIDE\PERINDOPRIL
  36. AMLODIPINE\INDAPAMIDE\PERINDOPRIL [Concomitant]
     Active Substance: AMLODIPINE\INDAPAMIDE\PERINDOPRIL
  37. AMLODIPINE\INDAPAMIDE\PERINDOPRIL [Concomitant]
     Active Substance: AMLODIPINE\INDAPAMIDE\PERINDOPRIL
  38. AMLODIPINE\INDAPAMIDE\PERINDOPRIL [Concomitant]
     Active Substance: AMLODIPINE\INDAPAMIDE\PERINDOPRIL
  39. AMLODIPINE\INDAPAMIDE\PERINDOPRIL [Concomitant]
     Active Substance: AMLODIPINE\INDAPAMIDE\PERINDOPRIL
  40. AMLODIPINE\INDAPAMIDE\PERINDOPRIL [Concomitant]
     Active Substance: AMLODIPINE\INDAPAMIDE\PERINDOPRIL
  41. AMLODIPINE\INDAPAMIDE\PERINDOPRIL [Concomitant]
     Active Substance: AMLODIPINE\INDAPAMIDE\PERINDOPRIL
  42. AMLODIPINE\INDAPAMIDE\PERINDOPRIL [Concomitant]
     Active Substance: AMLODIPINE\INDAPAMIDE\PERINDOPRIL
  43. AMLODIPINE\INDAPAMIDE\PERINDOPRIL [Concomitant]
     Active Substance: AMLODIPINE\INDAPAMIDE\PERINDOPRIL
  44. AMLODIPINE\INDAPAMIDE\PERINDOPRIL [Concomitant]
     Active Substance: AMLODIPINE\INDAPAMIDE\PERINDOPRIL
  45. AMLODIPINE\INDAPAMIDE\PERINDOPRIL [Concomitant]
     Active Substance: AMLODIPINE\INDAPAMIDE\PERINDOPRIL
  46. AMLODIPINE\INDAPAMIDE\PERINDOPRIL [Concomitant]
     Active Substance: AMLODIPINE\INDAPAMIDE\PERINDOPRIL
  47. AMLODIPINE\INDAPAMIDE\PERINDOPRIL [Concomitant]
     Active Substance: AMLODIPINE\INDAPAMIDE\PERINDOPRIL
  48. AMLODIPINE\INDAPAMIDE\PERINDOPRIL [Concomitant]
     Active Substance: AMLODIPINE\INDAPAMIDE\PERINDOPRIL
  49. AMLODIPINE\INDAPAMIDE\PERINDOPRIL [Concomitant]
     Active Substance: AMLODIPINE\INDAPAMIDE\PERINDOPRIL
  50. AMLODIPINE\INDAPAMIDE\PERINDOPRIL [Concomitant]
     Active Substance: AMLODIPINE\INDAPAMIDE\PERINDOPRIL
  51. AMLODIPINE\INDAPAMIDE\PERINDOPRIL [Concomitant]
     Active Substance: AMLODIPINE\INDAPAMIDE\PERINDOPRIL
  52. AMLODIPINE\INDAPAMIDE\PERINDOPRIL [Concomitant]
     Active Substance: AMLODIPINE\INDAPAMIDE\PERINDOPRIL
  53. AMLODIPINE\INDAPAMIDE\PERINDOPRIL [Concomitant]
     Active Substance: AMLODIPINE\INDAPAMIDE\PERINDOPRIL
  54. AMLODIPINE\INDAPAMIDE\PERINDOPRIL [Concomitant]
     Active Substance: AMLODIPINE\INDAPAMIDE\PERINDOPRIL
  55. AMLODIPINE\INDAPAMIDE\PERINDOPRIL [Concomitant]
     Active Substance: AMLODIPINE\INDAPAMIDE\PERINDOPRIL
  56. AMLODIPINE\INDAPAMIDE\PERINDOPRIL [Concomitant]
     Active Substance: AMLODIPINE\INDAPAMIDE\PERINDOPRIL
  57. AMLODIPINE\INDAPAMIDE\PERINDOPRIL [Concomitant]
     Active Substance: AMLODIPINE\INDAPAMIDE\PERINDOPRIL
  58. AMLODIPINE\INDAPAMIDE\PERINDOPRIL [Concomitant]
     Active Substance: AMLODIPINE\INDAPAMIDE\PERINDOPRIL
  59. AMLODIPINE\INDAPAMIDE\PERINDOPRIL [Concomitant]
     Active Substance: AMLODIPINE\INDAPAMIDE\PERINDOPRIL
  60. AMLODIPINE\INDAPAMIDE\PERINDOPRIL [Concomitant]
     Active Substance: AMLODIPINE\INDAPAMIDE\PERINDOPRIL
  61. AMLODIPINE\INDAPAMIDE\PERINDOPRIL [Concomitant]
     Active Substance: AMLODIPINE\INDAPAMIDE\PERINDOPRIL
  62. AMLODIPINE\INDAPAMIDE\PERINDOPRIL [Concomitant]
     Active Substance: AMLODIPINE\INDAPAMIDE\PERINDOPRIL
  63. AMLODIPINE\INDAPAMIDE\PERINDOPRIL [Concomitant]
     Active Substance: AMLODIPINE\INDAPAMIDE\PERINDOPRIL
  64. AMLODIPINE\INDAPAMIDE\PERINDOPRIL [Concomitant]
     Active Substance: AMLODIPINE\INDAPAMIDE\PERINDOPRIL
  65. AMLODIPINE\INDAPAMIDE\PERINDOPRIL [Concomitant]
     Active Substance: AMLODIPINE\INDAPAMIDE\PERINDOPRIL
  66. ENOXAPARIN SODIUM [Concomitant]
     Active Substance: ENOXAPARIN SODIUM
     Route: 058
     Dates: start: 20241120
  67. FILGRASTIM [Concomitant]
     Active Substance: FILGRASTIM
     Dosage: 30MU
     Route: 058
     Dates: start: 20241204
  68. LYRICA [Concomitant]
     Active Substance: PREGABALIN
     Route: 048
     Dates: start: 20241122
  69. ACILIN [Concomitant]
     Route: 048
     Dates: start: 20241126
  70. BACTRIM [Concomitant]
     Active Substance: SULFAMETHOXAZOLE\TRIMETHOPRIM
     Dates: start: 20241122
  71. BACTRIM [Concomitant]
     Active Substance: SULFAMETHOXAZOLE\TRIMETHOPRIM
     Dates: start: 20241122
  72. PANTOPRAZOLE SODIUM [Concomitant]
     Active Substance: PANTOPRAZOLE SODIUM
     Route: 048
     Dates: start: 20241122
  73. ALLOPURINOL [Concomitant]
     Active Substance: ALLOPURINOL
     Dates: start: 20241122
  74. TAVOR [Concomitant]
  75. FENTANYL [Concomitant]
     Active Substance: FENTANYL
     Dates: start: 20241122, end: 20250214
  76. FENTANYL [Concomitant]
     Active Substance: FENTANYL
     Dates: start: 20241124, end: 20250214
  77. PREDNISONE [Concomitant]
     Active Substance: PREDNISONE
     Dates: start: 20241218, end: 20250122
  78. PREDNISONE [Concomitant]
     Active Substance: PREDNISONE
     Dates: start: 20250128, end: 20250131
  79. ABILIFY [Concomitant]
     Active Substance: ARIPIPRAZOLE
     Dates: start: 20250122, end: 20250407
  80. FUROSEMIDE [Concomitant]
     Active Substance: FUROSEMIDE
     Dates: start: 20250122, end: 20250407
  81. TAZOCIN [Concomitant]
     Dates: start: 20241112, end: 20241120
  82. TAZOCIN [Concomitant]
     Dosage: PIPERACILLIN:4 G?TAZOBACTAM SODIUM:0,5 G
     Dates: start: 20250317, end: 20250414
  83. LORAZEPAM [Concomitant]
     Active Substance: LORAZEPAM
     Dates: start: 20241122
  84. VANCOMYCIN [Concomitant]
     Active Substance: VANCOMYCIN
     Dates: start: 20250415
  85. LINEZOLID [Concomitant]
     Active Substance: LINEZOLID
     Dates: start: 20250317, end: 20250414

REACTIONS (7)
  - Corynebacterium sepsis [Recovered/Resolved]
  - Acute respiratory failure [Recovered/Resolved]
  - Oral pruritus [Recovered/Resolved]
  - Epididymitis [Recovered/Resolved]
  - Abdominal pain [Recovered/Resolved]
  - Deep vein thrombosis [Recovered/Resolved]
  - Ischaemic stroke [Fatal]

NARRATIVE: CASE EVENT DATE: 20241223
